FAERS Safety Report 16174825 (Version 1)
Quarter: 2019Q2

REPORT INFORMATION
  Report Type: Spontaneous
  Country: US (occurrence: US)
  Receive Date: 20190306
  Receipt Date: 20190306
  Transmission Date: 20190711
  Serious: No
  Sender: FDA-Public Use
  Company Number: None

PATIENT
  Age: 44 Year
  Sex: Female

DRUGS (1)
  1. COPAXONE [Suspect]
     Active Substance: GLATIRAMER ACETATE
     Dosage: ?          OTHER FREQUENCY:UNKNOWN;?
     Route: 057
     Dates: start: 201902

REACTIONS (4)
  - Asthenia [None]
  - Injection site reaction [None]
  - Influenza like illness [None]
  - Arthralgia [None]

NARRATIVE: CASE EVENT DATE: 20190205
